FAERS Safety Report 18132621 (Version 1)
Quarter: 2020Q3

REPORT INFORMATION
  Report Type: Spontaneous
  Country: NL (occurrence: NL)
  Receive Date: 20200811
  Receipt Date: 20200811
  Transmission Date: 20201103
  Serious: Yes (Other)
  Sender: FDA-Public Use
  Company Number: NL-TEVA-2020-NL-1811800

PATIENT
  Age: 52 Year
  Sex: Female
  Weight: 71 kg

DRUGS (4)
  1. LISINOPRIL TABLET 20MG / BRAND NAME NOT SPECIFIED [Concomitant]
     Dosage: 20 MG , THERAPY START DATE AND END DATE: ASKU
  2. ISOSORBIDEDINITRAAT TABLET SUBLINGUAAL 5MG / BRAND NAME NOT SPECIFIED [Concomitant]
     Dosage: UNDER TO USE, 1 DF, THERAPY START DATE AND END DATE: ASKU
  3. DILTIAZEM TABLET MGA 90MG / BRAND NAME NOT SPECIFIED [Suspect]
     Active Substance: DILTIAZEM
     Indication: PRINZMETAL ANGINA
     Dosage: 2 DOSAGE FORMS DAILY; UNIT DOSE: 1 DF
     Dates: start: 20200711, end: 20200713
  4. ISOSORBIDEMONONITRAAT TABLET MGA  30MG / BRAND NAME NOT SPECIFIED [Concomitant]
     Dosage: 30MG, THERAPY START DATE AND END DATE: ASKU

REACTIONS (7)
  - Paraesthesia [Recovered/Resolved]
  - Dizziness [Unknown]
  - Angina pectoris [Recovered/Resolved]
  - Pruritus [Recovered/Resolved]
  - Body temperature abnormal [Unknown]
  - Paraesthesia oral [Unknown]
  - Feeling cold [Recovered/Resolved]

NARRATIVE: CASE EVENT DATE: 20200711
